FAERS Safety Report 20508696 (Version 1)
Quarter: 2022Q1

REPORT INFORMATION
  Report Type: Spontaneous
  Country: US (occurrence: None)
  Receive Date: 20220223
  Receipt Date: 20220223
  Transmission Date: 20220423
  Serious: No
  Sender: FDA-Public Use
  Company Number: None

PATIENT
  Sex: Female

DRUGS (1)
  1. FERAHEME [Suspect]
     Active Substance: FERUMOXYTOL NON-STOICHIOMETRIC MAGNETITE

REACTIONS (5)
  - Cardiac disorder [None]
  - Seizure [None]
  - White blood cell count decreased [None]
  - Full blood count decreased [None]
  - Intracardiac thrombus [None]
